FAERS Safety Report 25854751 (Version 4)
Quarter: 2025Q4

REPORT INFORMATION
  Report Type: Report from Study
  Country: CN (occurrence: CN)
  Receive Date: 20250927
  Receipt Date: 20251110
  Transmission Date: 20260117
  Serious: Yes (Hospitalization)
  Sender: SANOFI AVENTIS
  Company Number: CN-SA-2025SA275821

PATIENT
  Age: 72 Year
  Sex: Male
  Weight: 50 kg

DRUGS (18)
  1. OXALIPLATIN [Suspect]
     Active Substance: OXALIPLATIN
     Indication: Oesophageal adenocarcinoma
     Dosage: 143.65 MG, QOW
     Route: 042
     Dates: start: 20250815, end: 20250829
  2. OXALIPLATIN [Suspect]
     Active Substance: OXALIPLATIN
     Dosage: 109.85 MG, QOW
     Route: 042
     Dates: start: 20250925
  3. BUDIGALIMAB [Suspect]
     Active Substance: BUDIGALIMAB
     Indication: Oesophageal adenocarcinoma
     Dosage: 500 MG, Q4W
     Route: 042
     Dates: start: 20250815, end: 20250815
  4. BUDIGALIMAB [Suspect]
     Active Substance: BUDIGALIMAB
     Dosage: 500 MG, Q4W
     Route: 042
     Dates: start: 20250925
  5. LEUCOVORIN [Suspect]
     Active Substance: LEUCOVORIN\LEUCOVORIN CALCIUM
     Indication: Oesophageal adenocarcinoma
     Dosage: 676 MG, QOW
     Route: 042
     Dates: start: 20250815, end: 20250829
  6. LEUCOVORIN [Suspect]
     Active Substance: LEUCOVORIN\LEUCOVORIN CALCIUM
     Dosage: 676 MG, QOW
     Route: 042
     Dates: start: 20250925
  7. FLUOROURACIL [Suspect]
     Active Substance: FLUOROURACIL
     Indication: Oesophageal adenocarcinoma
     Dosage: 4056 MG, QOW
     Route: 042
     Dates: start: 20250815, end: 20250831
  8. FLUOROURACIL [Suspect]
     Active Substance: FLUOROURACIL
     Dosage: 3211 MG, QOW
     Route: 042
     Dates: start: 20250925
  9. PALONOSETRON [Concomitant]
     Active Substance: PALONOSETRON
     Indication: Gastrointestinal disorder prophylaxis
     Dosage: 0.25 MG, QOD
     Dates: start: 20250815, end: 20250817
  10. PALONOSETRON [Concomitant]
     Active Substance: PALONOSETRON
     Dosage: 0.25 MG, QOD
     Dates: start: 20250829, end: 20250831
  11. DEXAMETHASONE [Concomitant]
     Active Substance: DEXAMETHASONE
     Indication: Prophylaxis
     Dosage: 5 MG, QD (EVERY 1 DAYS)
     Dates: start: 20250815, end: 20250817
  12. DEXAMETHASONE [Concomitant]
     Active Substance: DEXAMETHASONE
     Dosage: 5 MG, QD (EVERY 1 DAYS)
     Dates: start: 20250829, end: 20250831
  13. OMEPRAZOLE SODIUM [Concomitant]
     Active Substance: OMEPRAZOLE SODIUM
     Indication: Gastrointestinal disorder prophylaxis
     Dosage: 60 MG, QD
     Dates: start: 20250815, end: 20250817
  14. OMEPRAZOLE SODIUM [Concomitant]
     Active Substance: OMEPRAZOLE SODIUM
     Dosage: 60 MG, QD
     Dates: start: 20250829, end: 20250831
  15. LOPERAMIDE [Concomitant]
     Active Substance: LOPERAMIDE
     Indication: Diarrhoea
     Dosage: 4 MG, TOTAL
     Dates: start: 20250901, end: 20250901
  16. APREPITANT [Concomitant]
     Active Substance: APREPITANT
     Indication: Gastrointestinal disorder prophylaxis
     Dosage: 130 MG, TOTAL
     Dates: start: 20250829, end: 20250829
  17. APREPITANT [Concomitant]
     Active Substance: APREPITANT
     Dosage: 130 MG, TOTAL
     Dates: start: 20250815, end: 20250815
  18. ROXATIDINE [Concomitant]
     Active Substance: ROXATIDINE
     Indication: Gastrooesophageal reflux disease
     Dosage: 75 MG, TOTAL
     Dates: start: 20250812, end: 20250812

REACTIONS (1)
  - Acute kidney injury [Recovered/Resolved]

NARRATIVE: CASE EVENT DATE: 20250905
